FAERS Safety Report 17345616 (Version 2)
Quarter: 2020Q1

REPORT INFORMATION
  Report Type: Spontaneous
  Country: PL (occurrence: PL)
  Receive Date: 20200129
  Receipt Date: 20200316
  Transmission Date: 20200409
  Serious: Yes (Other)
  Sender: FDA-Public Use
  Company Number: PL-TEVA-2020-PL-1177331

PATIENT
  Age: 73 Year
  Sex: Female

DRUGS (3)
  1. PACLITAXEL 150 MG [Suspect]
     Active Substance: PACLITAXEL
     Route: 042
     Dates: start: 2016, end: 201611
  2. PACLITAXEL 150 MG [Suspect]
     Active Substance: PACLITAXEL
     Dosage: 3 DOSES
     Route: 042
     Dates: start: 20160428, end: 201605
  3. TRASTUZUMAB 640 MG [Concomitant]
     Dosage: LOADING DOSE 8 MG/KG, 28 CYCLES
     Route: 042
     Dates: start: 20160428

REACTIONS (3)
  - Polyneuropathy [Recovered/Resolved]
  - Anaemia [Recovered/Resolved]
  - Therapeutic product effect incomplete [Unknown]

NARRATIVE: CASE EVENT DATE: 201605
